FAERS Safety Report 10769150 (Version 1)
Quarter: 2015Q1

REPORT INFORMATION
  Report Type: Spontaneous
  Country: JP (occurrence: JP)
  Receive Date: 20150206
  Receipt Date: 20150206
  Transmission Date: 20150721
  Serious: Yes (Hospitalization, Other)
  Sender: FDA-Public Use
  Company Number: JP-MUNDIPHARMA DS AND PHARMACOVIGILANCE-GBR-2015-0025218

PATIENT
  Sex: Male

DRUGS (4)
  1. OXYCODONE HCL IR POWDER 0.5% [Suspect]
     Active Substance: OXYCODONE HYDROCHLORIDE
     Indication: PRODUCT USED FOR UNKNOWN INDICATION
     Route: 065
  2. MEXITIL [Concomitant]
     Active Substance: MEXILETINE HYDROCHLORIDE
  3. ORGOTEIN [Concomitant]
     Active Substance: ORGOTEIN
     Route: 065
  4. OXYCONTIN [Suspect]
     Active Substance: OXYCODONE HYDROCHLORIDE
     Indication: PRODUCT USED FOR UNKNOWN INDICATION
     Route: 065

REACTIONS (3)
  - Drug abuse [Unknown]
  - Aggression [Unknown]
  - Altered state of consciousness [Unknown]
